FAERS Safety Report 7298648-2 (Version None)
Quarter: 2011Q1

REPORT INFORMATION
  Report Type: 
  Country: None (occurrence: None)
  Receive Date: 20110217
  Receipt Date: 20110209
  Transmission Date: 20110831
  Serious: Yes (Other)
  Sender: FDA-Public Use
  Company Number: US-JNJFOC-20080903776

PATIENT
  Sex: Female

DRUGS (5)
  1. RISPERDAL [Suspect]
     Indication: PSYCHOTIC DISORDER
     Route: 048
  2. RISPERDAL [Suspect]
     Indication: HALLUCINATION
     Route: 048
  3. RISPERDAL CONSTA [Suspect]
     Indication: PRODUCT USED FOR UNKNOWN INDICATION
     Route: 030
  4. SEROQUEL [Concomitant]
     Indication: ILL-DEFINED DISORDER
     Route: 065
  5. HALDOL [Suspect]
     Indication: PRODUCT USED FOR UNKNOWN INDICATION
     Route: 065

REACTIONS (11)
  - LETHARGY [None]
  - BLOOD PROLACTIN INCREASED [None]
  - PITUITARY TUMOUR [None]
  - WITHDRAWAL SYNDROME [None]
  - INSOMNIA [None]
  - ADVERSE EVENT [None]
  - GALACTORRHOEA [None]
  - OVERDOSE [None]
  - SEDATION [None]
  - DEPRESSION [None]
  - FATIGUE [None]
